FAERS Safety Report 8825192 (Version 1)
Quarter: 2012Q4

REPORT INFORMATION
  Report Type: 
  Country: IT (occurrence: IT)
  Receive Date: 20121004
  Receipt Date: 20121004
  Transmission Date: 20130627
  Serious: Yes (Hospitalization)
  Sender: FDA-Public Use
  Company Number: IT-GLAXOSMITHKLINE-B0835263A

PATIENT
  Age: 47 Year
  Sex: Female

DRUGS (1)
  1. RANIDIL [Suspect]
     Indication: VOMITING
     Route: 065
     Dates: start: 20120831, end: 20120831

REACTIONS (5)
  - Generalised erythema [Recovering/Resolving]
  - Abdominal pain [Recovering/Resolving]
  - Hot flush [Recovering/Resolving]
  - Pain in extremity [Recovering/Resolving]
  - Vomiting [Recovering/Resolving]
